FAERS Safety Report 8273642-3 (Version None)
Quarter: 2012Q2

REPORT INFORMATION
  Report Type: 
  Country: None (occurrence: None)
  Receive Date: 20120411
  Receipt Date: 20120214
  Transmission Date: 20120825
  Serious: No
  Sender: FDA-Public Use
  Company Number: US-TEVA-322730USA

PATIENT
  Sex: Female
  Weight: 86.26 kg

DRUGS (12)
  1. NUVIGIL [Suspect]
     Indication: FIBROMYALGIA
     Dosage: QD
     Route: 048
     Dates: start: 20111225, end: 20120213
  2. KLIOGEST [Concomitant]
     Indication: MENOPAUSE
     Route: 062
  3. CYCLOBENAZPRINE [Concomitant]
     Indication: FIBROMYALGIA
     Dosage: PRN
     Route: 048
  4. CLONAZEPAM [Concomitant]
     Indication: ANXIETY
     Dosage: QPM, PRN
     Route: 048
  5. PANADEINE CO [Concomitant]
     Indication: FIBROMYALGIA
  6. PERCOCET [Concomitant]
     Indication: PAIN
     Dosage: 10/325 MG PRN
     Route: 048
  7. RIZATRIPTAN [Concomitant]
     Indication: MIGRAINE
     Dosage: PRN
     Route: 048
  8. CLONIDINE [Concomitant]
     Indication: HOT FLUSH
     Dosage: QPM
     Route: 048
  9. PROMETHAZINE [Concomitant]
     Indication: NAUSEA
     Dosage: PRN
     Route: 048
  10. KETOROLAC TROMETHAMINE [Concomitant]
     Indication: HEADACHE
     Dosage: PRN
     Route: 048
  11. METOPROLOL TARTRATE [Concomitant]
     Indication: BLOOD PRESSURE
     Dosage: QPM
     Route: 048
  12. PANADEINE CO [Concomitant]
     Indication: HEADACHE
     Dosage: PRN
     Route: 048

REACTIONS (4)
  - PARAESTHESIA [None]
  - ARTHRALGIA [None]
  - OFF LABEL USE [None]
  - MYALGIA [None]
